FAERS Safety Report 13512224 (Version 1)
Quarter: 2017Q2

REPORT INFORMATION
  Report Type: Spontaneous
  Country: US (occurrence: US)
  Receive Date: 20170504
  Receipt Date: 20170504
  Transmission Date: 20170830
  Serious: Yes (Other)
  Sender: FDA-Public Use
  Company Number: US-B.I. PHARMACEUTICALS,INC./RIDGEFIELD-2017-BI-024073

PATIENT
  Sex: Female

DRUGS (2)
  1. PRADAXA [Suspect]
     Active Substance: DABIGATRAN ETEXILATE MESYLATE
     Indication: PRODUCT USED FOR UNKNOWN INDICATION
     Dosage: 1 CAPSULE TWICE DAILY;  FORM STRENGTH: 150 MG; FORMULATION: CAPSULE? ADMINISTRATION CORRECT? YES ?AC
     Route: 048
  2. LASIX [Concomitant]
     Active Substance: FUROSEMIDE
     Indication: HYPERNATRAEMIA
     Dosage: 1 TABLET AS NEEDED;  FORM STRENGTH: 20 MG; FORMULATION: TABLET, DAILY DOSE: 20MG 1 TABLET AS NEEDED
     Route: 048

REACTIONS (2)
  - Blindness [Not Recovered/Not Resolved]
  - Anxiety [Not Recovered/Not Resolved]
